FAERS Safety Report 5245325-5 (Version None)
Quarter: 2007Q1

REPORT INFORMATION
  Report Type: 
  Country: None (occurrence: None)
  Receive Date: 20070223
  Receipt Date: 20070212
  Transmission Date: 20070707
  Serious: Yes (Hospitalization)
  Sender: FDA-Public Use
  Company Number: FR-GLAXOSMITHKLINE-B0459390A

PATIENT
  Age: 86 Year
  Sex: Male
  Weight: 90 kg

DRUGS (1)
  1. ARIXTRA [Suspect]
     Dosage: 7.5MG PER DAY
     Route: 058
     Dates: start: 20070101, end: 20070201

REACTIONS (4)
  - ANAEMIA [None]
  - ECCHYMOSIS [None]
  - OFF LABEL USE [None]
  - RENAL FAILURE ACUTE [None]
